FAERS Safety Report 7258360-2 (Version None)
Quarter: 2011Q1

REPORT INFORMATION
  Report Type: 
  Country: None (occurrence: None)
  Receive Date: 20110129
  Receipt Date: 20100714
  Transmission Date: 20110831
  Serious: No
  Sender: FDA-Public Use
  Company Number: US-ABBOTT-10P-163-0658087-00

PATIENT
  Sex: Female
  Weight: 36.32 kg

DRUGS (3)
  1. HUMIRA [Suspect]
     Indication: JUVENILE ARTHRITIS
     Dates: start: 20100501
  2. METHOTREXATE [Concomitant]
     Indication: PRODUCT USED FOR UNKNOWN INDICATION
  3. NAPROXEN [Concomitant]
     Indication: PRODUCT USED FOR UNKNOWN INDICATION

REACTIONS (2)
  - INJECTION SITE REACTION [None]
  - INJECTION SITE ERYTHEMA [None]
